FAERS Safety Report 19975185 (Version 1)
Quarter: 2021Q4

REPORT INFORMATION
  Report Type: Spontaneous
  Country: US (occurrence: US)
  Receive Date: 20211020
  Receipt Date: 20211020
  Transmission Date: 20220303
  Serious: Yes (Hospitalization)
  Sender: FDA-Public Use
  Company Number: US-SAOL THERAPEUTICS-2021SAO00349

PATIENT
  Age: 14 Year
  Sex: Male

DRUGS (2)
  1. LIORESAL [Suspect]
     Active Substance: BACLOFEN
     Indication: Muscle spasticity
     Dosage: 800 ?G, \DAY
     Route: 037
  2. LIORESAL [Suspect]
     Active Substance: BACLOFEN
     Indication: Head injury

REACTIONS (7)
  - Spinal operation [Unknown]
  - Tachycardia [Unknown]
  - Agitation [Unknown]
  - Hypertension [Unknown]
  - Pyrexia [Unknown]
  - Hypotension [Unknown]
  - Complication associated with device [Unknown]

NARRATIVE: CASE EVENT DATE: 20210927
